FAERS Safety Report 9661366 (Version 1)
Quarter: 2013Q4

REPORT INFORMATION
  Report Type: Spontaneous
  Country: US (occurrence: None)
  Receive Date: 20131030
  Receipt Date: 20131030
  Transmission Date: 20140711
  Serious: Yes (Hospitalization)
  Sender: FDA-Public Use
  Company Number: SYM-2013-11976

PATIENT
  Age: 53 Year
  Sex: Female
  Weight: 68.04 kg

DRUGS (3)
  1. XENAZINE [Suspect]
     Indication: HUNTINGTON^S DISEASE
     Route: 048
     Dates: start: 201307, end: 20131020
  2. SEROQUEL (QUETIAPINE FUMARATE) (QUETIAPINE FUMARATE) [Concomitant]
  3. TRAZODONE (TRAZODONE) (TRAZODONE) [Concomitant]

REACTIONS (7)
  - Decreased appetite [None]
  - Hyperhidrosis [None]
  - Dyskinesia [None]
  - Vomiting [None]
  - Abdominal pain upper [None]
  - Cold sweat [None]
  - Dehydration [None]
